FAERS Safety Report 24600039 (Version 2)
Quarter: 2025Q1

REPORT INFORMATION
  Report Type: Spontaneous
  Country: US (occurrence: US)
  Receive Date: 20241110
  Receipt Date: 20250102
  Transmission Date: 20250408
  Serious: No
  Sender: SANOFI AVENTIS
  Company Number: US-SA-2024SA314916

PATIENT
  Age: 27 Year
  Sex: Female

DRUGS (4)
  1. DUPIXENT [Suspect]
     Active Substance: DUPILUMAB
     Indication: Dermatitis atopic
     Dosage: 300 MG, QOW
     Route: 058
     Dates: start: 202407
  2. DUPIXENT [Suspect]
     Active Substance: DUPILUMAB
     Indication: Eczema
  3. MIRENA [Concomitant]
     Active Substance: LEVONORGESTREL
  4. LORATADINE [Concomitant]
     Active Substance: LORATADINE

REACTIONS (7)
  - Lacrimation increased [Unknown]
  - Dry eye [Unknown]
  - Flushing [Recovered/Resolved]
  - Condition aggravated [Recovered/Resolved]
  - Skin burning sensation [Unknown]
  - Paraesthesia [Unknown]
  - Erythema [Unknown]

NARRATIVE: CASE EVENT DATE: 20240101
